FAERS Safety Report 7557305-5 (Version None)
Quarter: 2011Q2

REPORT INFORMATION
  Report Type: 
  Country: None (occurrence: None)
  Receive Date: 20110620
  Receipt Date: 20100830
  Transmission Date: 20111010
  Serious: Yes (Death, Other)
  Sender: FDA-Public Use
  Company Number: PHEH2009US13209

PATIENT
  Sex: Female
  Weight: 55 kg

DRUGS (8)
  1. EXJADE [Suspect]
     Indication: HAEMOCHROMATOSIS
     Dosage: 1250 MG
     Route: 048
     Dates: start: 20090101, end: 20090201
  2. REVLIMID [Concomitant]
     Dosage: 10 MG, DAILY
  3. MULTIPLE VITAMINS [Concomitant]
  4. DECITABINE [Suspect]
     Indication: MYELODYSPLASTIC SYNDROME
     Dosage: UNK
     Dates: start: 20090218
  5. ASPIRIN [Concomitant]
  6. COREG [Concomitant]
  7. PREDNISONE [Concomitant]
  8. VIDAZA [Concomitant]

REACTIONS (14)
  - PNEUMONIA [None]
  - NEOPLASM MALIGNANT [None]
  - BLOOD PRESSURE INCREASED [None]
  - DECREASED APPETITE [None]
  - RENAL FAILURE [None]
  - NEOPLASM PROGRESSION [None]
  - PURPURA [None]
  - NEUTROPENIC SEPSIS [None]
  - SERUM FERRITIN INCREASED [None]
  - SKIN DISCOLOURATION [None]
  - OEDEMA PERIPHERAL [None]
  - PYREXIA [None]
  - JOINT SWELLING [None]
  - DIARRHOEA [None]
